FAERS Safety Report 17731255 (Version 1)
Quarter: 2020Q2

REPORT INFORMATION
  Report Type: Spontaneous
  Country: GB (occurrence: GB)
  Receive Date: 20200430
  Receipt Date: 20200430
  Transmission Date: 20200714
  Serious: Yes (Hospitalization, Other)
  Sender: FDA-Public Use
  Company Number: GB-AMGEN-GBRSP2020068179

PATIENT
  Age: 4 Year
  Sex: Male
  Weight: 18 kg

DRUGS (22)
  1. AMILORIDE [Concomitant]
     Active Substance: AMILORIDE
  2. CIPROFLOXACIN HYDROCHLORIDE. [Concomitant]
     Active Substance: CIPROFLOXACIN HYDROCHLORIDE
  3. TEICOPLANIN [Concomitant]
     Active Substance: TEICOPLANIN
  4. DEXAMETHASONE. [Concomitant]
     Active Substance: DEXAMETHASONE
  5. PEGASPARGASE [Concomitant]
     Active Substance: PEGASPARGASE
  6. METHOTREXATE. [Suspect]
     Active Substance: METHOTREXATE
     Indication: ACUTE LYMPHOCYTIC LEUKAEMIA RECURRENT
     Dosage: 12 MILLIGRAM
     Route: 037
     Dates: start: 20200221, end: 20200408
  7. COTRIMOXAZOLE [Concomitant]
     Active Substance: SULFAMETHOXAZOLE\TRIMETHOPRIM
  8. VINCRISTINE [Concomitant]
     Active Substance: VINCRISTINE
  9. CEFTRIAXONE. [Concomitant]
     Active Substance: CEFTRIAXONE
  10. MORPHINE [Concomitant]
     Active Substance: MORPHINE
  11. VORICONAZOLE. [Concomitant]
     Active Substance: VORICONAZOLE
  12. CYTARABINE. [Suspect]
     Active Substance: CYTARABINE
     Indication: ACUTE LYMPHOCYTIC LEUKAEMIA RECURRENT
     Dosage: 30 MILLIGRAM
     Route: 037
     Dates: start: 20200221, end: 20200408
  13. PARACETAMOL [Concomitant]
     Active Substance: ACETAMINOPHEN
  14. ESOMEPRAZOLE SODIUM. [Concomitant]
     Active Substance: ESOMEPRAZOLE SODIUM
  15. AMPHOTERICIN B. [Concomitant]
     Active Substance: AMPHOTERICIN B
  16. HYDROCORTISONE. [Concomitant]
     Active Substance: HYDROCORTISONE
  17. TAZOCIN [Concomitant]
     Active Substance: PIPERACILLIN SODIUM\TAZOBACTAM SODIUM
  18. BLINCYTO [Suspect]
     Active Substance: BLINATUMOMAB
     Indication: ACUTE LYMPHOCYTIC LEUKAEMIA RECURRENT
     Dosage: 5 MICROGRAM/M2, QD
     Route: 042
     Dates: start: 20200410, end: 20200411
  19. LEVOMEPROMAZINE MALEATE [Concomitant]
     Active Substance: LEVOMEPROMAZINE MALEATE
  20. ONDANSETRON HYDROCHLORIDE. [Concomitant]
     Active Substance: ONDANSETRON HYDROCHLORIDE
  21. GABAPENTIN. [Concomitant]
     Active Substance: GABAPENTIN
  22. LANSOPRAZOLE. [Concomitant]
     Active Substance: LANSOPRAZOLE

REACTIONS (12)
  - Serum ferritin increased [Unknown]
  - Agitation [Unknown]
  - Hyperammonaemia [Not Recovered/Not Resolved]
  - Posturing [Unknown]
  - Dystonia [Unknown]
  - Emotional distress [Unknown]
  - Heart rate increased [Unknown]
  - Somnolence [Unknown]
  - Hepatomegaly [Unknown]
  - Encephalopathy [Not Recovered/Not Resolved]
  - Neurological decompensation [Not Recovered/Not Resolved]
  - Lethargy [Unknown]

NARRATIVE: CASE EVENT DATE: 20200411
